FAERS Safety Report 10449245 (Version 1)
Quarter: 2014Q3

REPORT INFORMATION
  Report Type: Spontaneous
  Country: US (occurrence: US)
  Receive Date: 20140912
  Receipt Date: 20140912
  Transmission Date: 20150326
  Serious: Yes (Other)
  Sender: FDA-Public Use
  Company Number: US-AUROBINDO-AUR-APL-2014-09591

PATIENT
  Age: 66 Year
  Sex: Female
  Weight: 85.26 kg

DRUGS (8)
  1. ENALAPRIL [Concomitant]
     Active Substance: ENALAPRIL
     Indication: HYPERTENSION
     Dosage: 10 MG, FOUR TIMES/DAY
     Route: 048
  2. ADDERALL [Concomitant]
     Active Substance: AMPHETAMINE ASPARTATE\AMPHETAMINE SULFATE\DEXTROAMPHETAMINE SACCHARATE\DEXTROAMPHETAMINE SULFATE
     Indication: ATTENTION DEFICIT/HYPERACTIVITY DISORDER
     Dosage: 30 MG, TWO TIMES A DAY
     Route: 048
  3. GABAPENTIN. [Concomitant]
     Active Substance: GABAPENTIN
     Indication: NEURALGIA
     Dosage: 600 MG, TWO TIMES A DAY
     Route: 048
  4. NORCO [Concomitant]
     Active Substance: ACETAMINOPHEN\HYDROCODONE BITARTRATE
     Indication: BACK PAIN
     Dosage: 325 MG, TWO TIMES A DAY
     Route: 048
  5. DULOXETINE DELAYED-RELEASE CAPSULES USP 30 MG [Suspect]
     Active Substance: DULOXETINE
     Indication: DEPRESSION
  6. TOPRAL XL                   /00586501/ [Concomitant]
     Indication: HYPERTENSION
     Dosage: 25 MG, FOUR TIMES/DAY
     Route: 048
  7. DULOXETINE DELAYED-RELEASE CAPSULES USP 30 MG [Suspect]
     Active Substance: DULOXETINE
     Indication: NEURALGIA
     Dosage: 30 MG, TWO TIMES A DAY
     Route: 048
     Dates: start: 201406, end: 20140818
  8. ATENOLOL. [Concomitant]
     Active Substance: ATENOLOL
     Indication: HYPERTENSION
     Dosage: 100 MG, DAILY
     Route: 048

REACTIONS (3)
  - Abdominal pain upper [Not Recovered/Not Resolved]
  - Hepatic enzyme increased [Not Recovered/Not Resolved]
  - Tenderness [Not Recovered/Not Resolved]

NARRATIVE: CASE EVENT DATE: 201406
